FAERS Safety Report 11167530 (Version 5)
Quarter: 2016Q1

REPORT INFORMATION
  Report Type: Report from Study
  Country: JP (occurrence: JP)
  Receive Date: 20150605
  Receipt Date: 20160215
  Transmission Date: 20160525
  Serious: Yes (Death, Disabling, Other)
  Sender: FDA-Public Use
  Company Number: JP-ALEXION PHARMACEUTICALS INC-A201501994

PATIENT
  Age: 2 Month
  Sex: Male
  Weight: 5.7 kg

DRUGS (13)
  1. FENTANYL. [Concomitant]
     Active Substance: FENTANYL
     Indication: ANALGESIC THERAPY
  2. DOPAMINE [Concomitant]
     Active Substance: DOPAMINE\DOPAMINE HYDROCHLORIDE
     Indication: BLOOD PRESSURE ABNORMAL
     Dosage: UNK, 10-20?
     Route: 065
  3. SOLIRIS [Suspect]
     Active Substance: ECULIZUMAB
     Indication: HAEMOLYTIC URAEMIC SYNDROME
     Dosage: 300 MG, QW
     Route: 042
     Dates: start: 20150525, end: 20150525
  4. THROMBOMODULIN ALFA [Suspect]
     Active Substance: THROMBOMODULIN ALFA
     Indication: DISSEMINATED INTRAVASCULAR COAGULATION
     Dosage: 380 IU/KG, QD
     Route: 042
     Dates: start: 20150520, end: 20150525
  5. DORMICUM                           /00634101/ [Concomitant]
     Active Substance: MIDAZOLAM\MIDAZOLAM HYDROCHLORIDE
     Indication: SEDATION
     Dosage: 0.3 MG/KG/MIN CONTINUING
     Route: 041
     Dates: start: 20150520, end: 20150527
  6. DORMICUM                           /00634101/ [Concomitant]
     Active Substance: MIDAZOLAM\MIDAZOLAM HYDROCHLORIDE
     Indication: ANALGESIC THERAPY
  7. FENTANYL. [Concomitant]
     Active Substance: FENTANYL
     Indication: SEDATION
     Dosage: UNK
     Route: 041
     Dates: start: 20150520, end: 20150527
  8. FOSMICIN                           /00552502/ [Concomitant]
     Indication: ENTEROCOLITIS
     Dosage: 720 MG, TID
     Route: 048
     Dates: start: 20150521, end: 20150527
  9. DOBUTREX [Concomitant]
     Active Substance: DOBUTAMINE HYDROCHLORIDE
     Indication: DISSEMINATED INTRAVASCULAR COAGULATION
     Dosage: 20 MAINTENANCE
     Route: 041
     Dates: start: 20150520, end: 20150527
  10. INOVAN                             /00360702/ [Concomitant]
     Indication: DISSEMINATED INTRAVASCULAR COAGULATION
     Dosage: 20 MAINTENANCE
     Route: 041
     Dates: start: 20150520, end: 20150527
  11. METHYLPREDNISOLONE. [Suspect]
     Active Substance: METHYLPREDNISOLONE
     Indication: ACUTE RESPIRATORY FAILURE
     Dosage: 300 MG, QD
     Route: 042
     Dates: start: 20150527, end: 20150527
  12. DOBUTAMINE [Concomitant]
     Active Substance: DOBUTAMINE\DOBUTAMINE HYDROCHLORIDE
     Indication: BLOOD PRESSURE ABNORMAL
     Dosage: UNK, 10-20?
     Route: 065
  13. METHYLPREDNISOLONE. [Suspect]
     Active Substance: METHYLPREDNISOLONE
     Indication: HAEMOLYTIC URAEMIC SYNDROME
     Dosage: 300 MG, QD
     Route: 042
     Dates: start: 20150520, end: 20150522

REACTIONS (4)
  - Pulmonary haemorrhage [Fatal]
  - Blood lactate dehydrogenase increased [Unknown]
  - Blood pressure decreased [Fatal]
  - Thrombosis [Not Recovered/Not Resolved]

NARRATIVE: CASE EVENT DATE: 20150526
